FAERS Safety Report 16469423 (Version 2)
Quarter: 2019Q4

REPORT INFORMATION
  Report Type: Spontaneous
  Country: US (occurrence: US)
  Receive Date: 20190624
  Receipt Date: 20191014
  Transmission Date: 20200122
  Serious: No
  Sender: FDA-Public Use
  Company Number: US-SA-2019SA164254

PATIENT
  Age: 52 Year
  Sex: Female

DRUGS (1)
  1. KEVZARA [Suspect]
     Active Substance: SARILUMAB
     Indication: RHEUMATOID ARTHRITIS
     Dosage: 200 MG, QOW
     Route: 058
     Dates: start: 20190306

REACTIONS (9)
  - Sneezing [Unknown]
  - Abdominal pain [Unknown]
  - Peripheral swelling [Unknown]
  - Nasal congestion [Unknown]
  - Blood cholesterol increased [Unknown]
  - Dyspnoea [Unknown]
  - Cough [Unknown]
  - Hypersensitivity [Unknown]
  - Joint swelling [Unknown]
